FAERS Safety Report 10276092 (Version 7)
Quarter: 2014Q4

REPORT INFORMATION
  Report Type: Spontaneous
  Country: FI (occurrence: FI)
  Receive Date: 20140703
  Receipt Date: 20141103
  Transmission Date: 20150528
  Serious: Yes (Other)
  Sender: FDA-Public Use
  Company Number: FI-JNJFOC-20140619000

PATIENT
  Sex: Male

DRUGS (2)
  1. NICORETTE [Suspect]
     Active Substance: NICOTINE
     Indication: SMOKING CESSATION THERAPY
     Dosage: FOR ONE DAY (PACKET OF 18 CAPSULES)
     Route: 065
     Dates: start: 2014
  2. NICORETTE [Suspect]
     Active Substance: NICOTINE
     Indication: SMOKING CESSATION THERAPY
     Dosage: 1 CAPSULE, SOME DAYS DON^T USE IT AT ALL (PACKET OF 18 CAPSULES)
     Route: 065
     Dates: start: 201310, end: 201311

REACTIONS (2)
  - Salivary gland mucocoele [Recovering/Resolving]
  - Product label issue [Unknown]
